FAERS Safety Report 21975610 (Version 6)
Quarter: 2023Q4

REPORT INFORMATION
  Report Type: Report from Study
  Country: AR (occurrence: None)
  Receive Date: 20230210
  Receipt Date: 20231017
  Transmission Date: 20240110
  Serious: Yes (Hospitalization)
  Sender: FDA-Public Use
  Company Number: AR-ROCHE-3276689

PATIENT
  Age: 44 Year
  Sex: Male
  Weight: 99 kg

DRUGS (12)
  1. MOSUNETUZUMAB [Suspect]
     Active Substance: MOSUNETUZUMAB
     Indication: B-cell lymphoma
     Route: 058
     Dates: start: 20230105
  2. MOSUNETUZUMAB [Suspect]
     Active Substance: MOSUNETUZUMAB
     Dosage: DOSE LAST STUDY DRUG ADMIN PRIOR AE/SAE WAS 45 MG?ON 25/JAN/2023, MOST RECENT DOSE OF STUDY DRUG MOS
     Route: 058
  3. POLATUZUMAB VEDOTIN [Suspect]
     Active Substance: POLATUZUMAB VEDOTIN
     Indication: B-cell lymphoma
     Dosage: DOSE LAST STUDY DRUG ADMIN PRIOR AE/SAE WAS 196 MG?DOSE LAST STUDY DRUG ADMIN PRIOR SAE WAS 1.8 MG?O
     Route: 042
     Dates: start: 20230105
  4. CLOBETASOL [Concomitant]
     Active Substance: CLOBETASOL
     Indication: Injection site erythema
     Dosage: 1 U
     Route: 061
     Dates: start: 20230107
  5. URSODIOL [Concomitant]
     Active Substance: URSODIOL
     Indication: Hypertransaminasaemia
     Dates: start: 20230209, end: 20230330
  6. OMEPRAZOLE [Concomitant]
     Active Substance: OMEPRAZOLE
     Indication: Gastritis prophylaxis
     Dates: start: 20230107, end: 20230206
  7. LYSINE CLONIXINATE [Concomitant]
     Indication: Pyrexia
     Dates: start: 20230130, end: 20230130
  8. FAMOTIDINE [Concomitant]
     Active Substance: FAMOTIDINE
     Dates: start: 20230207
  9. METRONIDAZOLE [Concomitant]
     Active Substance: METRONIDAZOLE
     Indication: Enteritis
     Dates: start: 20230214, end: 20230219
  10. VALGANCICLOVIR [Concomitant]
     Active Substance: VALGANCICLOVIR
     Indication: Cytomegalovirus infection reactivation
     Dates: start: 20230303
  11. FILGRASTIM [Concomitant]
     Active Substance: FILGRASTIM
     Indication: Prophylaxis
     Dates: start: 20230202, end: 20230210
  12. FILGRASTIM [Concomitant]
     Active Substance: FILGRASTIM
     Dates: start: 20230309, end: 20230309

REACTIONS (3)
  - Device related infection [Recovered/Resolved]
  - Pneumonia [Recovered/Resolved]
  - Alanine aminotransferase increased [Recovered/Resolved]

NARRATIVE: CASE EVENT DATE: 20230129
